FAERS Safety Report 4356071-4 (Version None)
Quarter: 2004Q2

REPORT INFORMATION
  Report Type: 
  Country: None (occurrence: None)
  Receive Date: 20040429
  Receipt Date: 20030408
  Transmission Date: 20050107
  Serious: Yes (Other)
  Sender: FDA-Public Use
  Company Number: 1671322A

PATIENT
  Age: 25 Month
  Sex: Female
  Weight: 14.5151 kg

DRUGS (2)
  1. IMODIUM A-D [Suspect]
     Indication: DIARRHOEA
     Dosage: 0.5 MG, BID, PO
     Route: 048
     Dates: start: 20030407
  2. TYLENOL (CAPLET) [Concomitant]

REACTIONS (4)
  - MALAISE [None]
  - NERVOUSNESS [None]
  - OVERDOSE [None]
  - VOMITING [None]
